FAERS Safety Report 16197599 (Version 1)
Quarter: 2019Q2

REPORT INFORMATION
  Report Type: Spontaneous
  Country: FR (occurrence: FR)
  Receive Date: 20190415
  Receipt Date: 20190415
  Transmission Date: 20190711
  Serious: Yes (Life-Threatening, Hospitalization)
  Sender: FDA-Public Use
  Company Number: FR-PFIZER INC-2019157045

PATIENT
  Age: 76 Year
  Sex: Female

DRUGS (5)
  1. TRIFLUCAN [Suspect]
     Active Substance: FLUCONAZOLE
     Indication: ANTIFUNGAL PROPHYLAXIS
     Dates: start: 20190228, end: 20190302
  2. FUROSEMIDE. [Concomitant]
     Active Substance: FUROSEMIDE
  3. FLECAINE LP [Interacting]
     Active Substance: FLECAINIDE
     Indication: ARRHYTHMIA
     Dosage: 150 MG, 1X/DAY
     Route: 048
     Dates: start: 2013, end: 20190305
  4. ESOMEPRAZOLE. [Concomitant]
     Active Substance: ESOMEPRAZOLE MAGNESIUM
  5. MIMPARA [Concomitant]
     Active Substance: CINACALCET HYDROCHLORIDE

REACTIONS (3)
  - Syncope [Recovered/Resolved]
  - Arrhythmia [Recovered/Resolved]
  - Drug interaction [Recovered/Resolved]

NARRATIVE: CASE EVENT DATE: 20190305
